FAERS Safety Report 4999684-9 (Version None)
Quarter: 2006Q2

REPORT INFORMATION
  Report Type: 
  Country: None (occurrence: None)
  Receive Date: 20060509
  Receipt Date: 20060509
  Transmission Date: 20061013
  Serious: Yes (Life-Threatening)
  Sender: FDA-Public Use
  Company Number: None

PATIENT
  Age: 63 Year
  Sex: Female
  Weight: 111 kg

DRUGS (8)
  1. ARGATROBAN [Suspect]
     Indication: THROMBOSIS PROPHYLAXIS
     Dosage: 0.25 MCG/KG/MIN DOSE ADJ ON APTT
  2. INSULIN [Concomitant]
  3. LEVOTHYROXINE SODIUM [Concomitant]
  4. SUCRALFATE [Concomitant]
  5. NYSTATINE [Concomitant]
  6. ZOSYN [Concomitant]
  7. HALDOL [Concomitant]
  8. VANCOMYCIN [Concomitant]

REACTIONS (3)
  - ACTIVATED PARTIAL THROMBOPLASTIN TIME PROLONGED [None]
  - GASTROINTESTINAL HAEMORRHAGE [None]
  - HAEMOGLOBIN DECREASED [None]
